FAERS Safety Report 7457946-X (Version None)
Quarter: 2011Q1

REPORT INFORMATION
  Report Type: 
  Country: None (occurrence: None)
  Receive Date: 20110302
  Receipt Date: 20101019
  Transmission Date: 20110831
  Serious: Yes (Death, Hospitalization)
  Sender: FDA-Public Use
  Company Number: 163-21880-10090634

PATIENT
  Age: 82 Year
  Sex: Female

DRUGS (11)
  1. LASIX [Concomitant]
  2. METOPROLOL TARTRATE [Concomitant]
  3. ARANESP [Concomitant]
  4. LEVOTHYROXINE SODIUM [Concomitant]
  5. REVLIMID [Suspect]
     Indication: MYELODYSPLASTIC SYNDROME
     Dosage: 5 MG, EVERY MON, WED, FRI, PO
     Route: 048
     Dates: start: 20100602, end: 20100809
  6. COLCHICINE [Concomitant]
  7. LOPRESSOR [Concomitant]
  8. ROXICODONE [Concomitant]
  9. OXYCONTIN [Concomitant]
  10. ALDACTONE [Concomitant]
  11. ALBUTEROL [Concomitant]

REACTIONS (1)
  - FAILURE TO THRIVE [None]
